FAERS Safety Report 6406495-6 (Version None)
Quarter: 2009Q4

REPORT INFORMATION
  Report Type: 
  Country: None (occurrence: None)
  Receive Date: 20091015
  Receipt Date: 20091005
  Transmission Date: 20100525
  Serious: Yes (Death, Hospitalization)
  Sender: FDA-Public Use
  Company Number: 2009SS000051

PATIENT
  Sex: Male
  Weight: 62.1428 kg

DRUGS (13)
  1. MYOBLOC [Suspect]
     Indication: OFF LABEL USE
     Dosage: 250 U; X1; IGLR, 200 U; X1; IGLR
     Dates: start: 20090226, end: 20090226
  2. MYOBLOC [Suspect]
     Indication: SALIVARY HYPERSECRETION
     Dosage: 250 U; X1; IGLR, 200 U; X1; IGLR
     Dates: start: 20090226, end: 20090226
  3. MYOBLOC [Suspect]
     Indication: OFF LABEL USE
     Dosage: 250 U; X1; IGLR, 200 U; X1; IGLR
     Dates: start: 20090429, end: 20090429
  4. MYOBLOC [Suspect]
     Indication: SALIVARY HYPERSECRETION
     Dosage: 250 U; X1; IGLR, 200 U; X1; IGLR
     Dates: start: 20090429, end: 20090429
  5. LITHIUM [Concomitant]
  6. RISPERDAL [Concomitant]
  7. ZYPREXA [Concomitant]
  8. NEXIUM [Concomitant]
  9. PROVIGIL [Concomitant]
  10. KLONOPIN [Concomitant]
  11. ZOLOFT [Concomitant]
  12. MIRAPEX [Concomitant]
  13. ASPIRIN [Concomitant]

REACTIONS (6)
  - ASTHENIA [None]
  - DYSPHAGIA [None]
  - MUSCULAR WEAKNESS [None]
  - OFF LABEL USE [None]
  - SOMNOLENCE [None]
  - WEIGHT DECREASED [None]
